FAERS Safety Report 13954417 (Version 2)
Quarter: 2017Q4

REPORT INFORMATION
  Report Type: Spontaneous
  Country: US (occurrence: US)
  Receive Date: 20170911
  Receipt Date: 20171017
  Transmission Date: 20180320
  Serious: No
  Sender: FDA-Public Use
  Company Number: US-PFIZER INC-2017391575

PATIENT
  Age: 76 Year
  Sex: Male

DRUGS (3)
  1. SUTENT [Suspect]
     Active Substance: SUNITINIB MALATE
     Dosage: 50 MG, CYCLIC(TIW (M-W-F), 2 WEEKS ON FOLLOWED BY 1 WEEK OFF)
  2. SUTENT [Suspect]
     Active Substance: SUNITINIB MALATE
     Dosage: 50 MG, CYCLIC (ONCE DAILY FOR 2 WEEKS THEN 1 WEEK OFF)
     Route: 048
     Dates: start: 20161010, end: 20170907
  3. SUTENT [Suspect]
     Active Substance: SUNITINIB MALATE
     Indication: RENAL CANCER
     Dosage: 50 MG, CYCLIC (DAILY X 7 DAYS, THEN 7 DAYS OFF, THEN REPEAT)
     Route: 048
     Dates: start: 20160806

REACTIONS (2)
  - Neoplasm progression [Unknown]
  - Diarrhoea [Unknown]
